FAERS Safety Report 5391837-3 (Version None)
Quarter: 2007Q3

REPORT INFORMATION
  Report Type: 
  Country: None (occurrence: None)
  Receive Date: 20070718
  Receipt Date: 20070703
  Transmission Date: 20080115
  Serious: Yes (Other)
  Sender: FDA-Public Use
  Company Number: 2007EN000179

PATIENT
  Age: 81 Year
  Sex: Female
  Weight: 66 kg

DRUGS (14)
  1. OPANA ER [Suspect]
     Indication: DRUG USE FOR UNKNOWN INDICATION
     Dosage: 20 MG; BID
     Dates: start: 20070701, end: 20070701
  2. QUINAPRIL [Concomitant]
  3. FOLIC ACID [Concomitant]
  4. POTASSIUM CHLORIDE [Concomitant]
  5. ZOCOR [Concomitant]
  6. SINGULAIR [Concomitant]
  7. FUROSEMIDE [Concomitant]
  8. PREVACID [Concomitant]
  9. THEOPHYLLINE [Concomitant]
  10. OSCAL/01746701/ [Concomitant]
  11. VITAMIN B6 [Concomitant]
  12. FOSAMAX [Concomitant]
  13. SPIRIVA [Concomitant]
  14. ADVAIR DISKUS 100/50 [Concomitant]

REACTIONS (2)
  - CHRONIC OBSTRUCTIVE PULMONARY DISEASE [None]
  - WHEEZING [None]
